FAERS Safety Report 11754190 (Version 4)
Quarter: 2020Q1

REPORT INFORMATION
  Report Type: Spontaneous
  Country: JP (occurrence: JP)
  Receive Date: 20151119
  Receipt Date: 20200210
  Transmission Date: 20200409
  Serious: Yes (Death, Hospitalization)
  Sender: FDA-Public Use
  Company Number: JP-ACTELION-A-CH2015-127446

PATIENT
  Age: 76 Year
  Sex: Male

DRUGS (12)
  1. MOSAPRIDE CITRATE [Concomitant]
     Active Substance: MOSAPRIDE CITRATE
  2. YOKUKANSAN [Concomitant]
     Active Substance: HERBALS
  3. PIPERACILLIN AND TAZOBACTAM [Concomitant]
     Active Substance: PIPERACILLIN SODIUM\TAZOBACTAM SODIUM
  4. APIXABAN [Concomitant]
     Active Substance: APIXABAN
  5. OPSUMIT [Suspect]
     Active Substance: MACITENTAN
     Indication: PULMONARY ARTERIAL HYPERTENSION
     Dosage: 10 MG, QD
     Route: 048
     Dates: start: 20150710, end: 20150928
  6. FUROSEMIDE. [Concomitant]
     Active Substance: FUROSEMIDE
  7. EPLERENONE. [Concomitant]
     Active Substance: EPLERENONE
  8. OXYGEN. [Concomitant]
     Active Substance: OXYGEN
  9. BISOPROLOL FUMARATE. [Concomitant]
     Active Substance: BISOPROLOL FUMARATE
  10. ENALAPRIL MALEATE. [Concomitant]
     Active Substance: ENALAPRIL MALEATE
  11. TADALAFIL. [Concomitant]
     Active Substance: TADALAFIL
  12. RABEPRAZOLE SODIUM. [Concomitant]
     Active Substance: RABEPRAZOLE SODIUM

REACTIONS (9)
  - Atrial fibrillation [Fatal]
  - Pyrexia [Not Recovered/Not Resolved]
  - Gastrooesophageal reflux disease [Not Recovered/Not Resolved]
  - Atrial flutter [Fatal]
  - Pneumonia [Not Recovered/Not Resolved]
  - Pulmonary hypertension [Fatal]
  - Brain natriuretic peptide increased [Fatal]
  - Cardiac failure [Fatal]
  - Dyspnoea exertional [Fatal]

NARRATIVE: CASE EVENT DATE: 20150720
